FAERS Safety Report 24853282 (Version 1)
Quarter: 2025Q1

REPORT INFORMATION
  Report Type: Spontaneous
  Country: FR (occurrence: FR)
  Receive Date: 20250117
  Receipt Date: 20250117
  Transmission Date: 20250408
  Serious: Yes (Hospitalization)
  Sender: SANOFI AVENTIS
  Company Number: None

PATIENT
  Age: 60 Year
  Sex: Male
  Weight: 94 kg

DRUGS (3)
  1. ISONIAZID\RIFAMPIN [Suspect]
     Active Substance: ISONIAZID\RIFAMPIN
     Indication: Disseminated Bacillus Calmette-Guerin infection
     Dosage: 2 DF, QD
     Route: 048
     Dates: start: 20241018
  2. ISONIAZID\RIFAMPIN [Suspect]
     Active Substance: ISONIAZID\RIFAMPIN
     Dosage: 3 DF, QD
     Route: 048
     Dates: start: 20241029
  3. ETHAMBUTOL HYDROCHLORIDE [Concomitant]
     Active Substance: ETHAMBUTOL HYDROCHLORIDE
     Indication: Disseminated Bacillus Calmette-Guerin infection
     Dosage: 150 MG, QD
     Route: 048
     Dates: start: 20241018

REACTIONS (2)
  - Rash maculo-papular [Recovering/Resolving]
  - Enanthema [Recovering/Resolving]

NARRATIVE: CASE EVENT DATE: 20241028
